FAERS Safety Report 7428673 (Version 5)
Quarter: 2014Q1

REPORT INFORMATION
  Report Type: Spontaneous
  Country: US (occurrence: US)
  Receive Date: 20100623
  Receipt Date: 20140318
  Transmission Date: 20141002
  Serious: Yes (Hospitalization)
  Sender: FDA-Public Use
  Company Number: US-BAYER-201025566NA

PATIENT
  Age: 17 Year
  Sex: Female
  Weight: 108.84 kg

DRUGS (19)
  1. YASMIN [Suspect]
     Dosage: UNK
     Dates: start: 2005, end: 2009
  2. OCELLA [Suspect]
     Dosage: UNK
     Dates: start: 2005, end: 2009
  3. FLUOXETINE [Concomitant]
  4. SEROQUEL [Concomitant]
  5. ADDERALL [Concomitant]
     Indication: ATTENTION DEFICIT/HYPERACTIVITY DISORDER
     Dosage: UNK
     Dates: start: 2003, end: 2007
  6. PERCOCET [Concomitant]
     Indication: PAIN
     Dosage: UNK
     Dates: start: 2003, end: 2007
  7. ABILIFY [Concomitant]
     Indication: BIPOLAR DISORDER
     Dosage: UNK
     Dates: start: 2003, end: 2007
  8. IMITREX [Concomitant]
     Dosage: UNK
     Dates: start: 2005, end: 2012
  9. AMIDRINE [Concomitant]
     Dosage: UNK
     Dates: start: 20060828
  10. PROMETHAZINE [Concomitant]
     Dosage: 25 MG, UNK
     Dates: start: 20060920
  11. LITHIUM CARBONATE [Concomitant]
     Dosage: 3000, UNK
     Dates: start: 20060927
  12. FLUTICASONE [Concomitant]
     Dosage: 50 MCG, UNK
     Route: 045
     Dates: start: 20110811
  13. GLUCOPHAGE [Concomitant]
     Dosage: UNK
     Dates: start: 20060811
  14. FLONASE [Concomitant]
     Dosage: UNK
     Dates: start: 20060811
  15. LEVOXYL [Concomitant]
     Dosage: UNK
     Dates: start: 20060828
  16. PROZAC [Concomitant]
     Dosage: UNK
     Dates: start: 20060828
  17. ZYRTEC [Concomitant]
     Dosage: UNK
     Dates: start: 20060828
  18. DARVOCET [Concomitant]
     Dosage: UNK
     Dates: start: 20061002
  19. PREVACID [Concomitant]
     Dosage: UNK
     Dates: start: 20061002

REACTIONS (3)
  - Cholecystectomy [Unknown]
  - Injury [Unknown]
  - Cholecystitis chronic [None]
